FAERS Safety Report 5620817-5 (Version None)
Quarter: 2008Q1

REPORT INFORMATION
  Report Type: 
  Country: None (occurrence: None)
  Receive Date: 20080208
  Receipt Date: 20080110
  Transmission Date: 20080703
  Serious: Yes (Hospitalization)
  Sender: FDA-Public Use
  Company Number: NL-AMGEN-US254967

PATIENT
  Sex: Female

DRUGS (10)
  1. ENBREL [Suspect]
     Indication: PSORIASIS
     Route: 065
     Dates: start: 20071109
  2. THYRAX [Concomitant]
     Route: 065
  3. HYDRALAZINE HCL [Concomitant]
     Route: 065
  4. DAIVONEX [Concomitant]
     Dosage: 50MCG OINTMENT: USED WHEN NEEDED
     Route: 061
  5. ALLOPURINOL [Concomitant]
     Route: 065
  6. RENAGEL [Concomitant]
     Route: 065
  7. CARVEDILOL [Concomitant]
     Route: 065
  8. ALFACALCIDOL [Concomitant]
     Route: 065
  9. FERROGRAD [Concomitant]
     Route: 065
  10. CARBASALATE CALCIUM [Concomitant]
     Indication: DRUG USE FOR UNKNOWN INDICATION
     Route: 065

REACTIONS (1)
  - MYALGIA [None]
